FAERS Safety Report 26070276 (Version 4)
Quarter: 2025Q4

REPORT INFORMATION
  Report Type: Spontaneous
  Country: US (occurrence: US)
  Receive Date: 20251120
  Receipt Date: 20251231
  Transmission Date: 20260118
  Serious: Yes (Life-Threatening)
  Sender: TEVA
  Company Number: US-TEVA-VS-3393267

PATIENT
  Age: 17 Year
  Sex: Male

DRUGS (1)
  1. EPINEPHRINE [Suspect]
     Active Substance: EPINEPHRINE
     Indication: Anaphylactic reaction
     Route: 065
     Dates: start: 20251111

REACTIONS (2)
  - Device mechanical issue [Unknown]
  - Drug dose omission by device [Unknown]

NARRATIVE: CASE EVENT DATE: 20251111
